FAERS Safety Report 10208584 (Version 1)
Quarter: 2014Q2

REPORT INFORMATION
  Report Type: Spontaneous
  Country: DE (occurrence: DE)
  Receive Date: 20140530
  Receipt Date: 20140530
  Transmission Date: 20141212
  Serious: Yes (Life-Threatening)
  Sender: FDA-Public Use
  Company Number: DE-WATSON-2014-11236

PATIENT
  Sex: Female
  Weight: 80 kg

DRUGS (2)
  1. FENTANYL (UNKNOWN) [Suspect]
     Indication: PAIN
     Dosage: UNK UNK, Q1H
     Route: 062
  2. PREGABALIN [Concomitant]
     Indication: PRODUCT USED FOR UNKNOWN INDICATION
     Dosage: 200 MG, DAILY
     Route: 048

REACTIONS (2)
  - Coma [Recovering/Resolving]
  - Respiratory failure [Recovering/Resolving]
